FAERS Safety Report 7592779-5 (Version None)
Quarter: 2011Q3

REPORT INFORMATION
  Report Type: 
  Country: None (occurrence: None)
  Receive Date: 20110706
  Receipt Date: 20110627
  Transmission Date: 20111222
  Serious: No
  Sender: FDA-Public Use
  Company Number: US-PFIZER INC-2011144806

PATIENT
  Age: 13 Year
  Weight: 46 kg

DRUGS (2)
  1. ZOSYN [Suspect]
     Dosage: 4.5 MG, 3X/DAY
  2. ZOSYN [Suspect]
     Indication: INTESTINAL PERFORATION
     Dosage: 3.375 MG, 4X/DAY

REACTIONS (1)
  - HYPERSOMNIA [None]
